FAERS Safety Report 14175390 (Version 3)
Quarter: 2018Q2

REPORT INFORMATION
  Report Type: Spontaneous
  Country: CZ (occurrence: CZ)
  Receive Date: 20171109
  Receipt Date: 20180518
  Transmission Date: 20180711
  Serious: Yes (Life-Threatening, Hospitalization, Other)
  Sender: FDA-Public Use
  Company Number: CZ-PFIZER INC-2017478667

PATIENT
  Age: 70 Year
  Sex: Male
  Weight: 84 kg

DRUGS (20)
  1. NOLPAZA [Concomitant]
     Active Substance: PANTOPRAZOLE SODIUM
     Dosage: 40 MG, UNK
  2. DIAZEPAM. [Concomitant]
     Active Substance: DIAZEPAM
     Dosage: 5 MG, UNK
  3. LACTULOSA [Concomitant]
     Active Substance: LACTULOSE
  4. SALAZOPYRIN EN [Suspect]
     Active Substance: SULFASALAZINE
     Indication: COLITIS ULCERATIVE
     Dosage: 500 MG, 3X/DAY
     Route: 048
     Dates: start: 20170707, end: 20171013
  5. DEGAN [Concomitant]
     Active Substance: METOCLOPRAMIDE HYDROCHLORIDE
  6. NOVORAPID [Concomitant]
     Active Substance: INSULIN ASPART
  7. GENTAMYCIN [Concomitant]
     Active Substance: GENTAMICIN
     Dosage: 80 MG
  8. TRAJENTA [Concomitant]
     Active Substance: LINAGLIPTIN
     Dosage: 5 MG, UNK
  9. ALGIFEN /00374501/ [Concomitant]
  10. FURON /00032601/ [Concomitant]
     Active Substance: FUROSEMIDE
     Dosage: 40 MG, UNK
  11. ZARZIO [Concomitant]
     Active Substance: FILGRASTIM
     Dosage: 48 UNK, 48 MU
  12. EGILOK [Concomitant]
     Active Substance: METOPROLOL TARTRATE
     Dosage: 25 MG
  13. MERTENIL [Concomitant]
     Dosage: 10 MG
  14. DIFLUCAN [Concomitant]
     Active Substance: FLUCONAZOLE
     Dosage: 100 MG, UNK
  15. VANCOMYCIN [Concomitant]
     Active Substance: VANCOMYCIN
     Dosage: 500 MG, UNK
  16. LEVEMIR [Concomitant]
     Active Substance: INSULIN DETEMIR
  17. HYDROCORTISON /00028601/ [Concomitant]
     Active Substance: HYDROCORTISONE
     Dosage: 100 MG, UNK
  18. CLOPIDOGREL [Concomitant]
     Active Substance: CLOPIDOGREL BISULFATE
     Dosage: 75 MG, UNK
  19. CLEXANE [Concomitant]
     Active Substance: ENOXAPARIN SODIUM
     Dosage: 0.4 ML, UNK
  20. TANYZ [Concomitant]
     Active Substance: TAMSULOSIN HYDROCHLORIDE
     Dosage: 0.4 MG, UNK

REACTIONS (6)
  - Pneumonia [Unknown]
  - Bone marrow failure [Recovered/Resolved]
  - Pancytopenia [Unknown]
  - Splenomegaly [Unknown]
  - Sinusitis [Unknown]
  - Endocarditis [Unknown]

NARRATIVE: CASE EVENT DATE: 2017
